FAERS Safety Report 9440113 (Version 1)
Quarter: 2013Q3

REPORT INFORMATION
  Report Type: Spontaneous
  Country: US (occurrence: US)
  Receive Date: 20130805
  Receipt Date: 20130805
  Transmission Date: 20140515
  Serious: Yes (Other)
  Sender: FDA-Public Use
  Company Number: US-MERCK-2011SP052320

PATIENT
  Sex: Female

DRUGS (3)
  1. SAPHRIS [Suspect]
     Indication: AFFECTIVE DISORDER
     Dosage: 5 MG
     Route: 048
  2. SAPHRIS [Suspect]
     Dosage: 10 MG
     Dates: start: 20111025, end: 20111103
  3. BUSPIRONE HYDROCHLORIDE [Concomitant]

REACTIONS (12)
  - Suicidal ideation [Recovering/Resolving]
  - Homicidal ideation [Recovering/Resolving]
  - Self-injurious ideation [Recovering/Resolving]
  - Abnormal behaviour [Recovering/Resolving]
  - Skin irritation [Recovering/Resolving]
  - Oropharyngeal blistering [Recovering/Resolving]
  - Nausea [Recovering/Resolving]
  - Drooling [Recovering/Resolving]
  - Somnolence [Recovering/Resolving]
  - Drug administered to patient of inappropriate age [Unknown]
  - Off label use [Unknown]
  - Aggression [Unknown]
